FAERS Safety Report 22307311 (Version 6)
Quarter: 2024Q3

REPORT INFORMATION
  Report Type: Report from Study
  Country: US (occurrence: US)
  Receive Date: 20230511
  Receipt Date: 20240810
  Transmission Date: 20241017
  Serious: Yes (Other)
  Sender: ABBVIE
  Company Number: US-ABBVIE-4759632

PATIENT
  Age: 61 Year
  Sex: Male

DRUGS (9)
  1. SKYRIZI [Suspect]
     Active Substance: RISANKIZUMAB-RZAA
     Indication: Crohn^s disease
     Dosage: WEEK 12?DISCONTINUED IN 2023?FORM STRENGTH: 360MG
     Route: 058
     Dates: start: 20221127
  2. SKYRIZI [Suspect]
     Active Substance: RISANKIZUMAB-RZAA
     Dosage: WEEK 20?DISCONTINUED IN 2023
     Route: 058
     Dates: start: 20230422
  3. SKYRIZI [Suspect]
     Active Substance: RISANKIZUMAB-RZAA
     Route: 058
     Dates: start: 20230621
  4. SKYRIZI [Suspect]
     Active Substance: RISANKIZUMAB-RZAA
     Dosage: LAST ADMIN DATE: 2023
     Route: 058
     Dates: start: 20221127
  5. SKYRIZI [Suspect]
     Active Substance: RISANKIZUMAB-RZAA
     Dosage: WEEK 12?DISCONTINUED IN 2023 ?FORM STRENGTH: 360MG
     Route: 058
     Dates: start: 20230224
  6. SKYRIZI [Suspect]
     Active Substance: RISANKIZUMAB-RZAA
     Route: 058
     Dates: start: 202407
  7. SKYRIZI [Suspect]
     Active Substance: RISANKIZUMAB-RZAA
     Indication: Crohn^s disease
     Dosage: WEEK 8
     Route: 042
     Dates: start: 20230127, end: 20230127
  8. SKYRIZI [Suspect]
     Active Substance: RISANKIZUMAB-RZAA
     Indication: Crohn^s disease
     Dosage: WEEK 0
     Route: 042
     Dates: start: 20221127, end: 20221127
  9. SKYRIZI [Suspect]
     Active Substance: RISANKIZUMAB-RZAA
     Indication: Crohn^s disease
     Dosage: WEEK 4
     Route: 042
     Dates: start: 20221227, end: 20221227

REACTIONS (26)
  - Small intestinal resection [Recovering/Resolving]
  - Arthralgia [Not Recovered/Not Resolved]
  - Fatigue [Not Recovered/Not Resolved]
  - Decreased appetite [Unknown]
  - Drug ineffective [Unknown]
  - Insomnia [Not Recovered/Not Resolved]
  - Diarrhoea [Not Recovered/Not Resolved]
  - Poor quality sleep [Unknown]
  - General physical health deterioration [Unknown]
  - Headache [Not Recovered/Not Resolved]
  - Nasopharyngitis [Recovering/Resolving]
  - Abdominal pain [Not Recovered/Not Resolved]
  - Liver function test abnormal [Unknown]
  - Cough [Unknown]
  - Hepatic steatosis [Unknown]
  - Pain [Unknown]
  - Rhinorrhoea [Unknown]
  - Feeling abnormal [Unknown]
  - Rhinorrhoea [Not Recovered/Not Resolved]
  - Throat irritation [Unknown]
  - Frequent bowel movements [Not Recovered/Not Resolved]
  - Flatulence [Not Recovered/Not Resolved]
  - Asthenia [Not Recovered/Not Resolved]
  - Gastrointestinal sounds abnormal [Not Recovered/Not Resolved]
  - Abdominal discomfort [Unknown]
  - Pelvic floor muscle weakness [Unknown]

NARRATIVE: CASE EVENT DATE: 20221101
